FAERS Safety Report 7537923-0 (Version None)
Quarter: 2011Q2

REPORT INFORMATION
  Report Type: 
  Country: None (occurrence: None)
  Receive Date: 20110609
  Receipt Date: 20110527
  Transmission Date: 20111010
  Serious: Yes (Hospitalization)
  Sender: FDA-Public Use
  Company Number: DK-JNJFOC-20101204807

PATIENT
  Sex: Female

DRUGS (9)
  1. PANTOPRAZOLE SODIUM [Concomitant]
     Route: 042
  2. DAIVOBET [Concomitant]
     Route: 061
  3. IBUPROFEN [Concomitant]
     Route: 065
  4. REMICADE [Suspect]
     Indication: PSORIASIS
     Route: 042
     Dates: start: 20100121
  5. NOVOLOG [Concomitant]
     Dosage: PENFILL
     Route: 058
  6. LANTUS [Concomitant]
     Route: 058
  7. IRBESARTAN AND HYDROCHLOROTHIAZIDE [Concomitant]
     Route: 048
  8. ORABET (METFORMIN) [Concomitant]
     Route: 048
  9. SIMVASTATIN [Concomitant]
     Route: 065

REACTIONS (6)
  - NAUSEA [None]
  - URINARY TRACT INFECTION [None]
  - MALAISE [None]
  - FATIGUE [None]
  - COUGH [None]
  - CYSTITIS [None]
